FAERS Safety Report 9398673 (Version 2)
Quarter: 2013Q3

REPORT INFORMATION
  Report Type: Spontaneous
  Country: US (occurrence: US)
  Receive Date: 20130712
  Receipt Date: 20130920
  Transmission Date: 20140515
  Serious: Yes (Hospitalization, Other)
  Sender: FDA-Public Use
  Company Number: US-PFIZER INC-2013201331

PATIENT
  Age: 65 Year
  Sex: Male
  Weight: 52.61 kg

DRUGS (2)
  1. ELELYSO [Suspect]
     Indication: GAUCHER^S DISEASE
     Dosage: 6600 UNITS EVERY 2 WEEKS
     Route: 042
     Dates: start: 201301
  2. ELELYSO [Suspect]
     Dosage: UNK
     Dates: start: 201301

REACTIONS (4)
  - Cardiac disorder [Unknown]
  - Hypoaesthesia [Unknown]
  - Lumbar spinal stenosis [Unknown]
  - Neuropathy peripheral [Unknown]
